FAERS Safety Report 8472704-5 (Version None)
Quarter: 2012Q2

REPORT INFORMATION
  Report Type: 
  Country: None (occurrence: None)
  Receive Date: 20120627
  Receipt Date: 20120620
  Transmission Date: 20120825
  Serious: Yes (Hospitalization)
  Sender: FDA-Public Use
  Company Number: PHHO2010US09111

PATIENT
  Sex: Female
  Weight: 78.8 kg

DRUGS (6)
  1. SIMULECT [Concomitant]
     Indication: RENAL TRANSPLANT
     Dosage: 20 MG, ONCE/SINGLE
     Route: 042
     Dates: start: 20100610
  2. CERTICAN [Suspect]
     Indication: RENAL TRANSPLANT
     Dosage: 0.75 MG, BID
     Route: 048
     Dates: start: 20100611, end: 20100618
  3. SIMULECT [Concomitant]
     Dosage: 20 MG, ONCE/SINGLE
     Route: 042
     Dates: start: 20100614
  4. BUMETANIDE [Concomitant]
     Indication: RENAL FAILURE CHRONIC
  5. PROGRAF [Suspect]
     Indication: RENAL TRANSPLANT
     Dosage: 2 MG, BID
     Route: 048
     Dates: start: 20100611
  6. AMLODIPINE BESYLATE [Concomitant]
     Indication: HYPERTENSION

REACTIONS (3)
  - RENAL TUBULAR NECROSIS [None]
  - KIDNEY TRANSPLANT REJECTION [None]
  - DRUG INEFFECTIVE [None]
